FAERS Safety Report 9126021 (Version 1)
Quarter: 2013Q1

REPORT INFORMATION
  Report Type: Spontaneous
  Country: US (occurrence: US)
  Receive Date: 20130121
  Receipt Date: 20130121
  Transmission Date: 20140127
  Serious: Yes (Death, Other)
  Sender: FDA-Public Use
  Company Number: US-UCBSA-074760

PATIENT
  Age: 31 Year
  Sex: Male

DRUGS (8)
  1. LEVETIRACETAM [Suspect]
  2. DIPHENHYDRAMINE [Suspect]
     Route: 048
  3. EPINEPHRINE [Concomitant]
  4. SODIUM BICARBONATE [Concomitant]
  5. AMIODARONE [Concomitant]
  6. PHENOBARBITAL [Concomitant]
  7. PHENYTOIN [Concomitant]
  8. VECURONIUM [Concomitant]

REACTIONS (1)
  - Acute respiratory distress syndrome [Fatal]
